FAERS Safety Report 7275248-1 (Version None)
Quarter: 2011Q1

REPORT INFORMATION
  Report Type: 
  Country: None (occurrence: None)
  Receive Date: 20110204
  Receipt Date: 20110128
  Transmission Date: 20110831
  Serious: Yes (Other)
  Sender: FDA-Public Use
  Company Number: GB-PFIZER INC-2011022638

PATIENT
  Sex: Male

DRUGS (1)
  1. TOLTERODINE TARTRATE [Suspect]
     Indication: HYPERTONIC BLADDER
     Dosage: 4 MG, 1X/DAY

REACTIONS (3)
  - BRAIN INJURY [None]
  - CONFUSIONAL STATE [None]
  - ABNORMAL BEHAVIOUR [None]
